FAERS Safety Report 25755523 (Version 1)
Quarter: 2025Q3

REPORT INFORMATION
  Report Type: Spontaneous
  Country: EU (occurrence: EU)
  Receive Date: 20250903
  Receipt Date: 20250903
  Transmission Date: 20251021
  Serious: Yes (Hospitalization)
  Sender: MYLAN
  Company Number: None

PATIENT
  Age: 100 Year
  Sex: Female
  Weight: 59 kg

DRUGS (4)
  1. MIRTAZAPINE [Suspect]
     Active Substance: MIRTAZAPINE
     Indication: Depression
     Dosage: 2 DOSAGE FORM, QD (TWO 15 MG TABLETS IN THE EVENING)
     Dates: start: 20230701, end: 20250818
  2. MIRTAZAPINE [Suspect]
     Active Substance: MIRTAZAPINE
     Dosage: 2 DOSAGE FORM, QD (TWO 15 MG TABLETS IN THE EVENING)
     Route: 048
     Dates: start: 20230701, end: 20250818
  3. MIRTAZAPINE [Suspect]
     Active Substance: MIRTAZAPINE
     Dosage: 2 DOSAGE FORM, QD (TWO 15 MG TABLETS IN THE EVENING)
     Route: 048
     Dates: start: 20230701, end: 20250818
  4. MIRTAZAPINE [Suspect]
     Active Substance: MIRTAZAPINE
     Dosage: 2 DOSAGE FORM, QD (TWO 15 MG TABLETS IN THE EVENING)
     Dates: start: 20230701, end: 20250818

REACTIONS (1)
  - Hepatic cytolysis [Recovering/Resolving]

NARRATIVE: CASE EVENT DATE: 20250715
